FAERS Safety Report 23797670 (Version 2)
Quarter: 2024Q2

REPORT INFORMATION
  Report Type: Spontaneous
  Country: NG (occurrence: None)
  Receive Date: 20240430
  Receipt Date: 20240507
  Transmission Date: 20240716
  Serious: Yes (Hospitalization)
  Sender: FDA-Public Use
  Company Number: NG-ROCHE-3549695

PATIENT
  Sex: Female

DRUGS (1)
  1. KADCYLA [Suspect]
     Active Substance: ADO-TRASTUZUMAB EMTANSINE
     Indication: Product used for unknown indication
     Route: 065

REACTIONS (3)
  - Fall [Unknown]
  - Loss of consciousness [Unknown]
  - Eye injury [Unknown]
